FAERS Safety Report 8815477 (Version 1)
Quarter: 2012Q4

REPORT INFORMATION
  Report Type: 
  Country: US (occurrence: US)
  Receive Date: 20120928
  Receipt Date: 20120928
  Transmission Date: 20130627
  Serious: Yes (Death)
  Sender: FDA-Public Use
  Company Number: US-GLAXOSMITHKLINE-A0994973A

PATIENT
  Age: 71 Year
  Sex: Male

DRUGS (15)
  1. VOTRIENT [Suspect]
     Indication: RENAL CANCER
     Dosage: 800MG Per day
     Route: 065
     Dates: start: 20110622, end: 20120828
  2. COUMADIN [Concomitant]
     Route: 065
  3. LISINOPRIL [Concomitant]
     Route: 065
  4. REQUIP [Concomitant]
     Route: 065
  5. FERROUS SULFATE [Concomitant]
     Route: 065
  6. VITAMIN D [Concomitant]
     Route: 065
  7. METOLAZONE [Concomitant]
     Route: 065
  8. IRON [Concomitant]
     Route: 065
  9. SYNTHROID [Concomitant]
     Route: 065
  10. COREG [Concomitant]
     Route: 065
  11. LASIX [Concomitant]
     Route: 065
  12. POTASSIUM [Concomitant]
     Route: 065
  13. SINEMET [Concomitant]
     Route: 065
  14. MULTIVITAMIN [Concomitant]
     Route: 065
  15. STOOL SOFTENER [Concomitant]
     Route: 065

REACTIONS (1)
  - Death [Fatal]
